FAERS Safety Report 8283439-6 (Version None)
Quarter: 2012Q2

REPORT INFORMATION
  Report Type: 
  Country: None (occurrence: None)
  Receive Date: 20120413
  Receipt Date: 20120403
  Transmission Date: 20120825
  Serious: Yes (Other)
  Sender: FDA-Public Use
  Company Number: CA-ROCHE-1056637

PATIENT
  Sex: Female

DRUGS (2)
  1. LUCENTIS [Suspect]
     Indication: PRODUCT USED FOR UNKNOWN INDICATION
     Dosage: RECEIVED ONLY ONE INJECTION OF RANIBIZUMAB.
     Route: 050
     Dates: start: 20110501
  2. AVASTIN [Concomitant]

REACTIONS (2)
  - INFARCTION [None]
  - GASTROINTESTINAL HAEMORRHAGE [None]
